FAERS Safety Report 6525811-8 (Version None)
Quarter: 2010Q1

REPORT INFORMATION
  Report Type: 
  Country: None (occurrence: None)
  Receive Date: 20100104
  Receipt Date: 20091223
  Transmission Date: 20100710
  Serious: Yes (Death, Life-Threatening)
  Sender: FDA-Public Use
  Company Number: B0512197A

PATIENT
  Sex: Female
  Weight: 94 kg

DRUGS (5)
  1. LAMICTAL [Suspect]
     Indication: EPILEPSY
     Dosage: 350MG PER DAY
     Route: 048
     Dates: start: 20030101
  2. CITALOPRAM HYDROBROMIDE [Suspect]
     Indication: DEPRESSION
     Route: 065
     Dates: start: 20010601, end: 20030101
  3. SEROQUEL [Suspect]
     Dosage: 50MG PER DAY
     Route: 048
     Dates: start: 20030101
  4. DELEPSINE [Suspect]
     Indication: EPILEPSY
     Dosage: 1000MG PER DAY
     Route: 048
     Dates: start: 20030101
  5. MINULET [Suspect]
     Indication: CONTRACEPTION
     Dosage: 1TAB PER DAY
     Route: 048
     Dates: start: 20030101

REACTIONS (13)
  - BLOOD THYROID STIMULATING HORMONE INCREASED [None]
  - CHEST DISCOMFORT [None]
  - DIZZINESS [None]
  - DRUG INTERACTION [None]
  - DRUG TOXICITY [None]
  - DYSPNOEA [None]
  - ENCEPHALITIS [None]
  - HEART RATE INCREASED [None]
  - MALAISE [None]
  - PALPITATIONS [None]
  - SINUS TACHYCARDIA [None]
  - THYROIDITIS [None]
  - TRI-IODOTHYRONINE INCREASED [None]
